FAERS Safety Report 9553595 (Version 1)
Quarter: 2013Q3

REPORT INFORMATION
  Report Type: Spontaneous
  Country: US (occurrence: None)
  Receive Date: 20130815
  Receipt Date: 20130815
  Transmission Date: 20140515
  Serious: Yes (Other)
  Sender: FDA-Public Use
  Company Number: ADR-2012-01317

PATIENT
  Sex: Male

DRUGS (3)
  1. LIORESAL [Suspect]
     Indication: POST LAMINECTOMY SYNDROME
  2. LIORESAL [Suspect]
     Indication: PAIN
  3. BUPIVACAINE [Concomitant]

REACTIONS (2)
  - Muscle spasms [None]
  - Pain [None]
